FAERS Safety Report 4897018-1 (Version None)
Quarter: 2006Q1

REPORT INFORMATION
  Report Type: 
  Country: None (occurrence: None)
  Receive Date: 20060127
  Receipt Date: 20060116
  Transmission Date: 20060701
  Serious: Yes (Other)
  Sender: FDA-Public Use
  Company Number: GB200512000096

PATIENT
  Age: 50 Year
  Sex: Female

DRUGS (5)
  1. ZYPREXA [Suspect]
     Indication: PSYCHOTIC DISORDER
     Dosage: SEE IMAGE
     Route: 048
     Dates: start: 20030219, end: 20051201
  2. ZYPREXA [Suspect]
     Indication: PSYCHOTIC DISORDER
     Dosage: SEE IMAGE
     Route: 048
     Dates: start: 20010502, end: 20051205
  3. ZYPREXA [Suspect]
     Indication: PSYCHOTIC DISORDER
     Dosage: SEE IMAGE
     Route: 048
     Dates: start: 20010510
  4. TRAZODONE HCL [Concomitant]
  5. DIAZEPAM [Concomitant]

REACTIONS (3)
  - LYMPHOCYTE COUNT DECREASED [None]
  - NEUTROPENIA [None]
  - WHITE BLOOD CELL COUNT DECREASED [None]
